FAERS Safety Report 22115894 (Version 1)
Quarter: 2023Q1

REPORT INFORMATION
  Report Type: Spontaneous
  Country: FR (occurrence: FR)
  Receive Date: 20230320
  Receipt Date: 20230320
  Transmission Date: 20230418
  Serious: Yes (Other)
  Sender: FDA-Public Use
  Company Number: FR-009507513-2107FRA008597

PATIENT
  Age: 66 Year
  Sex: Male

DRUGS (1)
  1. EMEND [Suspect]
     Active Substance: APREPITANT
     Dosage: UNK
     Dates: start: 201903

REACTIONS (2)
  - Recurrent cancer [Unknown]
  - Off label use [Unknown]

NARRATIVE: CASE EVENT DATE: 20190301
